FAERS Safety Report 7979574-X (Version None)
Quarter: 2011Q4

REPORT INFORMATION
  Report Type: 
  Country: None (occurrence: None)
  Receive Date: 20111214
  Receipt Date: 20111202
  Transmission Date: 20120403
  Serious: Yes (Life-Threatening, Hospitalization)
  Sender: FDA-Public Use
  Company Number: IE-MPIJNJ-2011-05935

PATIENT

DRUGS (4)
  1. VELCADE [Suspect]
     Indication: DIFFUSE LARGE B-CELL LYMPHOMA
     Dosage: UNK
     Route: 065
     Dates: start: 20110819
  2. CYCLOPHOSPHAMIDE [Suspect]
     Indication: DIFFUSE LARGE B-CELL LYMPHOMA
     Route: 065
  3. RITUXIMAB [Suspect]
     Indication: DIFFUSE LARGE B-CELL LYMPHOMA
     Route: 065
  4. DOXORUBICIN HCL [Suspect]
     Indication: DIFFUSE LARGE B-CELL LYMPHOMA
     Route: 065

REACTIONS (11)
  - DYSARTHRIA [None]
  - NEUTROPENIC SEPSIS [None]
  - MELAENA [None]
  - BACK PAIN [None]
  - BLOOD CULTURE POSITIVE [None]
  - SEPTIC SHOCK [None]
  - MALAISE [None]
  - PSEUDOMONAS INFECTION [None]
  - PANCYTOPENIA [None]
  - HYPOTENSION [None]
  - MUSCLE DISORDER [None]
